FAERS Safety Report 16564270 (Version 1)
Quarter: 2019Q3

REPORT INFORMATION
  Report Type: Report from Study
  Country: HU (occurrence: HU)
  Receive Date: 20190712
  Receipt Date: 20190712
  Transmission Date: 20191004
  Serious: Yes (Hospitalization)
  Sender: FDA-Public Use
  Company Number: HU-TEVA-2019-HU-1075621

PATIENT
  Age: 75 Year
  Sex: Female
  Weight: 65 kg

DRUGS (16)
  1. MEGACE [Concomitant]
     Active Substance: MEGESTROL ACETATE
     Indication: DECREASED APPETITE
     Dosage: UNK UNK, UNK
     Route: 065
     Dates: start: 20171220
  2. GEMCITABINE HYDROCHLORIDE. [Suspect]
     Active Substance: GEMCITABINE HYDROCHLORIDE
     Dosage: 900 MG/M2, ON DAY ONE AND EIGHT OF EACH 21 DAY CYCLE
     Route: 042
     Dates: start: 20181030, end: 20181030
  3. GEMCITABINE HYDROCHLORIDE. [Suspect]
     Active Substance: GEMCITABINE HYDROCHLORIDE
     Dosage: 900 MG/M2, CYCLICAL
     Route: 042
     Dates: start: 20171016, end: 20180102
  4. GEMCITABINE HYDROCHLORIDE. [Suspect]
     Active Substance: GEMCITABINE HYDROCHLORIDE
     Dosage: 675 MG/M2,DAY ONE AND THREE OF EACH 21 DAYS) Q3W
     Route: 042
     Dates: start: 20180109, end: 20180109
  5. DOCETAXEL. [Suspect]
     Active Substance: DOCETAXEL
     Dosage: 60 MG/M2, ON DAY OF 8 OF EACH 21 DAY CYCLE, Q3W
     Route: 042
     Dates: start: 20180109, end: 20180109
  6. DOCETAXEL. [Suspect]
     Active Substance: DOCETAXEL
     Dosage: UNK UNK, UNK
     Route: 042
     Dates: start: 20181030, end: 20181030
  7. GEMCITABINE HYDROCHLORIDE. [Suspect]
     Active Substance: GEMCITABINE HYDROCHLORIDE
     Indication: SOFT TISSUE SARCOMA
     Route: 042
     Dates: start: 20161016, end: 20161016
  8. DOCETAXEL. [Suspect]
     Active Substance: DOCETAXEL
     Indication: SOFT TISSUE SARCOMA
     Dosage: 75 MG/M2, CYCLICAL
     Route: 042
     Dates: start: 20171024, end: 20171205
  9. DOCETAXEL. [Suspect]
     Active Substance: DOCETAXEL
     Dosage: 75 MG/M2, ON DAY 8 OF EACH 21 DAY CYCLE
     Route: 042
     Dates: start: 20171206, end: 20171206
  10. OLARATUMAB [Suspect]
     Active Substance: OLARATUMAB
     Indication: SOFT TISSUE SARCOMA
     Dosage: UNK UNK, CYCLICAL
     Route: 042
  11. MALTOFER FOL [Concomitant]
     Active Substance: FOLIC ACID\IRON POLYMALTOSE
     Indication: ANAEMIA
     Dosage: UNK UNK, UNK
     Route: 065
     Dates: start: 20180804
  12. DOCETAXEL. [Suspect]
     Active Substance: DOCETAXEL
     Dosage: 75 MG/M2, ON DAY 8 OF EACH 21 DAY CYCLE
     Route: 042
     Dates: start: 20171024, end: 20171024
  13. THEOPHYLLINE SODIUM AMINOACETATE [Concomitant]
     Indication: BRADYCARDIA
     Dosage: UNK UNK, UNK
     Route: 065
     Dates: start: 2014
  14. CLEXANE [Concomitant]
     Active Substance: ENOXAPARIN SODIUM
     Indication: PROPHYLAXIS
     Dosage: UNK UNK, UNK
     Route: 065
     Dates: start: 20180731
  15. GEMCITABINE HYDROCHLORIDE. [Suspect]
     Active Substance: GEMCITABINE HYDROCHLORIDE
     Dosage: 900 MG/M2,(DAY ONE AND THREE OF EACH 21 DAYS), Q3W
     Route: 042
     Dates: start: 20180102, end: 20180102
  16. QUAMATEL [Concomitant]
     Active Substance: FAMOTIDINE
     Indication: PROPHYLAXIS
     Dosage: UNK UNK, UNK
     Route: 065
     Dates: start: 20180731

REACTIONS (4)
  - Diarrhoea [Recovered/Resolved]
  - Erysipelas [Recovered/Resolved]
  - Enterocolitis [Recovered/Resolved]
  - Dehydration [Recovered/Resolved]

NARRATIVE: CASE EVENT DATE: 20181109
